FAERS Safety Report 4624997-X (Version None)
Quarter: 2005Q2

REPORT INFORMATION
  Report Type: 
  Country: None (occurrence: None)
  Receive Date: 20050401
  Receipt Date: 20050321
  Transmission Date: 20051028
  Serious: Yes (Other)
  Sender: FDA-Public Use
  Company Number: FR-JNJFOC-20050203440

PATIENT
  Age: 90 Year
  Sex: Female

DRUGS (5)
  1. REMINYL [Suspect]
     Route: 049
     Dates: start: 20040101, end: 20050101
  2. REMINYL [Suspect]
     Route: 049
     Dates: start: 20040101, end: 20050101
  3. REMINYL [Suspect]
     Route: 049
     Dates: start: 20040101, end: 20050101
  4. ENALAPRIL MALEATE [Concomitant]
     Route: 065
  5. PRAVASTATIN [Concomitant]
     Route: 065

REACTIONS (2)
  - CARDIAC FAILURE [None]
  - CARDIAC VALVE DISEASE [None]
